FAERS Safety Report 4431394-9 (Version None)
Quarter: 2004Q3

REPORT INFORMATION
  Report Type: 
  Country: None (occurrence: None)
  Receive Date: 20040820
  Receipt Date: 20040820
  Transmission Date: 20050211
  Serious: Yes (Hospitalization)
  Sender: FDA-Public Use
  Company Number: None

PATIENT
  Age: 46 Year
  Sex: Female
  Weight: 77.5651 kg

DRUGS (9)
  1. MERREM [Suspect]
     Indication: LYMPHOMA
     Dosage: 1 GM Q8 IV
     Route: 042
     Dates: start: 20040814, end: 20040819
  2. TNA [Concomitant]
  3. SYNTHROID [Concomitant]
  4. PREDNISONE [Concomitant]
  5. PHENERGAN HCL [Concomitant]
  6. PROTONIX [Concomitant]
  7. ON100 [Concomitant]
  8. SS INSULIN [Concomitant]
  9. DUONEBS [Concomitant]

REACTIONS (2)
  - LYMPHOMA [None]
  - STEVENS-JOHNSON SYNDROME [None]
